FAERS Safety Report 6480821-4 (Version None)
Quarter: 2009Q4

REPORT INFORMATION
  Report Type: 
  Country: None (occurrence: None)
  Receive Date: 20091123
  Receipt Date: 20090928
  Transmission Date: 20100525
  Serious: No
  Sender: FDA-Public Use
  Company Number: 8052641

PATIENT
  Age: 48 Year
  Sex: Female
  Weight: 67.2 kg

DRUGS (3)
  1. CIMZIA [Suspect]
     Indication: COLITIS ULCERATIVE
     Dosage: 400 MG SC
     Route: 058
     Dates: start: 20090923
  2. LIPITOR [Concomitant]
  3. YAZ [Concomitant]

REACTIONS (2)
  - FATIGUE [None]
  - OFF LABEL USE [None]
